FAERS Safety Report 4631042-9 (Version None)
Quarter: 2005Q2

REPORT INFORMATION
  Report Type: 
  Country: None (occurrence: None)
  Receive Date: 20050408
  Receipt Date: 20050331
  Transmission Date: 20051028
  Serious: Yes (Other)
  Sender: FDA-Public Use
  Company Number: GB-ABBOTT-05P-167-0296516-00

PATIENT
  Age: 50 Year
  Sex: Female

DRUGS (4)
  1. ERYTHROMYCIN [Suspect]
     Indication: THROAT IRRITATION
     Route: 048
     Dates: start: 20050201
  2. ERYTHROMYCIN [Suspect]
     Indication: PHARYNGOLARYNGEAL PAIN
  3. ERYTHROMYCIN [Suspect]
     Indication: PHARYNGOLARYNGEAL PAIN
     Route: 048
     Dates: start: 20050318, end: 20050325
  4. EYE DROPS [Suspect]
     Indication: DRUG USE FOR UNKNOWN INDICATION
     Dates: start: 20041001, end: 20041101

REACTIONS (3)
  - FEELING ABNORMAL [None]
  - OROPHARYNGEAL SWELLING [None]
  - PLATELET COUNT DECREASED [None]
